FAERS Safety Report 5699168-9 (Version None)
Quarter: 2008Q2

REPORT INFORMATION
  Report Type: 
  Country: None (occurrence: None)
  Receive Date: 20080407
  Receipt Date: 20080407
  Transmission Date: 20081010
  Serious: Yes (Death)
  Sender: FDA-Public Use
  Company Number: None

PATIENT
  Age: 80 Year
  Sex: Female
  Weight: 63.5036 kg

DRUGS (2)
  1. BONIVA [Suspect]
     Indication: OSTEOPOROSIS
     Dosage: 1 PILL  PER MONTH PO
     Route: 048
     Dates: start: 20061101, end: 20070101
  2. FOSAMAX [Suspect]
     Indication: OSTEOPOROSIS

REACTIONS (8)
  - AMYOTROPHIC LATERAL SCLEROSIS [None]
  - ARTHRALGIA [None]
  - ASTHENIA [None]
  - BALANCE DISORDER [None]
  - DYSPHAGIA [None]
  - FALL [None]
  - REFUSAL OF TREATMENT BY PATIENT [None]
  - TOOTH DISORDER [None]
